FAERS Safety Report 14191516 (Version 1)
Quarter: 2017Q4

REPORT INFORMATION
  Report Type: Spontaneous
  Country: US (occurrence: US)
  Receive Date: 20171115
  Receipt Date: 20171115
  Transmission Date: 20180321
  Serious: Yes (Hospitalization)
  Sender: FDA-Public Use
  Company Number: US-ABBVIE-17P-163-2152352-00

PATIENT
  Age: 34 Year
  Sex: Female
  Weight: 61.74 kg

DRUGS (10)
  1. AXITINIB [Suspect]
     Active Substance: AXITINIB
     Indication: SYNOVIAL SARCOMA
     Route: 065
     Dates: start: 2017, end: 201710
  2. DILAUDID [Concomitant]
     Active Substance: HYDROMORPHONE HYDROCHLORIDE
     Indication: BACK PAIN
     Route: 042
     Dates: start: 20170926, end: 20171001
  3. KEYTRUDA [Suspect]
     Active Substance: PEMBROLIZUMAB
     Indication: SYNOVIAL SARCOMA
     Route: 065
     Dates: start: 2017
  4. ACYCLOVIR. [Suspect]
     Active Substance: ACYCLOVIR
     Indication: PRODUCT USED FOR UNKNOWN INDICATION
     Route: 048
  5. SYNTHROID [Suspect]
     Active Substance: LEVOTHYROXINE SODIUM
     Indication: HYPOTHYROIDISM
     Route: 048
     Dates: start: 20170609
  6. COMPAZINE [Concomitant]
     Active Substance: PROCHLORPERAZINE MALEATE
     Indication: VOMITING
     Route: 048
     Dates: start: 20170927, end: 20170930
  7. ACYCLOVIR. [Suspect]
     Active Substance: ACYCLOVIR
     Route: 042
  8. ZOFRAN [Concomitant]
     Active Substance: ONDANSETRON HYDROCHLORIDE
     Indication: VOMITING
     Route: 048
     Dates: start: 20170927, end: 20170930
  9. PERI-COLACE [Concomitant]
     Active Substance: CASANTHRANOL\DOCUSATE SODIUM
     Indication: CONSTIPATION
     Route: 048
     Dates: start: 20170527
  10. OXYCONTIN [Concomitant]
     Active Substance: OXYCODONE HYDROCHLORIDE
     Indication: PAIN
     Route: 048
     Dates: start: 20170412

REACTIONS (13)
  - Gallbladder disorder [Unknown]
  - Thrombocytopenia [Unknown]
  - Nausea [Unknown]
  - Vomiting [Recovering/Resolving]
  - Rash [Recovering/Resolving]
  - Abdominal pain [Not Recovered/Not Resolved]
  - Dyspepsia [Not Recovered/Not Resolved]
  - Abdominal pain upper [Unknown]
  - Back pain [Recovered/Resolved]
  - Decreased appetite [Not Recovered/Not Resolved]
  - Herpes zoster [Unknown]
  - Diarrhoea [Recovered/Resolved]
  - Skin lesion [Unknown]

NARRATIVE: CASE EVENT DATE: 2017
